FAERS Safety Report 16316382 (Version 3)
Quarter: 2020Q3

REPORT INFORMATION
  Report Type: Report from Study
  Country: US (occurrence: US)
  Receive Date: 20190515
  Receipt Date: 20200716
  Transmission Date: 20201102
  Serious: Yes (Death, Hospitalization, Other)
  Sender: FDA-Public Use
  Company Number: PHHY2019US111139

PATIENT
  Age: 57 Year
  Sex: Male
  Weight: 50 kg

DRUGS (13)
  1. B6 [Concomitant]
     Active Substance: PYRIDOXINE HYDROCHLORIDE
     Indication: TUBERCULOSIS
     Dosage: 50 MG, QD
     Route: 065
     Dates: start: 20190410
  2. LAMPRENE [Suspect]
     Active Substance: CLOFAZIMINE
     Indication: TUBERCULOSIS
     Dosage: 200 MG, QD
     Route: 048
     Dates: start: 20190422, end: 20200623
  3. LINEZOLID. [Interacting]
     Active Substance: LINEZOLID
     Indication: STAPHYLOCOCCAL SEPSIS
     Dosage: 600 MG, QD DUE TO CONCERN FOR CNS TB
     Route: 065
     Dates: start: 20190509, end: 20200525
  4. PZA [Concomitant]
     Active Substance: PYRAZINAMIDE
     Indication: TUBERCULOSIS
     Dosage: 1750 MG, QD
     Route: 065
     Dates: start: 20190423
  5. LINEZOLID. [Interacting]
     Active Substance: LINEZOLID
     Indication: TUBERCULOSIS
     Dosage: 600 MG, QD
     Route: 065
     Dates: start: 20190410, end: 20190503
  6. LINEZOLID. [Interacting]
     Active Substance: LINEZOLID
     Dosage: 600 MG, QD
     Route: 042
     Dates: start: 20200226
  7. B6 [Concomitant]
     Active Substance: PYRIDOXINE HYDROCHLORIDE
     Dosage: 100 MG, QD DUE TO PATIENT SYMPTOMS
     Route: 065
     Dates: start: 20190423
  8. LAMPRENE [Suspect]
     Active Substance: CLOFAZIMINE
     Dosage: 100 MG, QD FOR CV RISK AND QT PROLONGATION RISK
     Route: 048
     Dates: start: 20190503
  9. ZOFRAN [Interacting]
     Active Substance: ONDANSETRON HYDROCHLORIDE
     Indication: NAUSEA
     Dosage: UNK
     Route: 065
     Dates: start: 20190410, end: 20190501
  10. LEVOFLOXACIN. [Suspect]
     Active Substance: LEVOFLOXACIN
     Indication: PRODUCT USED FOR UNKNOWN INDICATION
     Dosage: 750 MG, QD
     Route: 065
     Dates: start: 20190410, end: 20190918
  11. MOXIFLOXACIN. [Suspect]
     Active Substance: MOXIFLOXACIN
     Indication: PRODUCT USED FOR UNKNOWN INDICATION
     Route: 065
  12. PACET [Concomitant]
     Indication: PRODUCT USED FOR UNKNOWN INDICATION
     Dosage: 2 G, BID
     Route: 065
     Dates: start: 20190410, end: 20190423
  13. PACET [Concomitant]
     Dosage: 06 G, QD
     Route: 065

REACTIONS (27)
  - Angina pectoris [Unknown]
  - Dyspnoea [Recovering/Resolving]
  - Balance disorder [Unknown]
  - Speech disorder [Unknown]
  - Asthenia [Unknown]
  - Confusional state [Unknown]
  - Gastrointestinal adenocarcinoma [Unknown]
  - Non-small cell lung cancer [Unknown]
  - Staphylococcal sepsis [Unknown]
  - Disturbance in attention [Unknown]
  - Facial paralysis [Unknown]
  - Neuropathy peripheral [Unknown]
  - Metastases to bone [Unknown]
  - Metastases to spine [Unknown]
  - Headache [Unknown]
  - Dyspnoea exertional [Unknown]
  - Metastases to central nervous system [Unknown]
  - Dysphagia [Unknown]
  - Adenocarcinoma metastatic [Fatal]
  - Metastases to spinal cord [Unknown]
  - Confusional state [Unknown]
  - Chronic lymphocytic leukaemia [Unknown]
  - Tremor [Not Recovered/Not Resolved]
  - Central nervous system lesion [Unknown]
  - Central nervous system lesion [Unknown]
  - Vasogenic cerebral oedema [Unknown]
  - Drug interaction [Unknown]

NARRATIVE: CASE EVENT DATE: 20190423
